FAERS Safety Report 7957521-4 (Version None)
Quarter: 2011Q4

REPORT INFORMATION
  Report Type: 
  Country: None (occurrence: None)
  Receive Date: 20111205
  Receipt Date: 20111130
  Transmission Date: 20120403
  Serious: Yes (Disabling)
  Sender: FDA-Public Use
  Company Number: US-GLAXOSMITHKLINE-A0956059A

PATIENT
  Age: 53 Year
  Sex: Female

DRUGS (12)
  1. ARMOUR [Concomitant]
  2. ESTRACE [Concomitant]
  3. AMBIEN [Concomitant]
  4. VIACIN [Concomitant]
  5. LOVAZA [Suspect]
     Indication: BLOOD TRIGLYCERIDES INCREASED
     Dosage: 2CAP TWICE PER DAY
     Route: 048
     Dates: start: 20111031, end: 20111122
  6. PROTONIX [Concomitant]
  7. CALCIUM CARBONATE [Concomitant]
  8. UNKNOWN [Concomitant]
  9. EFFEXOR [Concomitant]
  10. PHENERGAN [Concomitant]
  11. CLONIDINE [Concomitant]
  12. XANAX [Concomitant]

REACTIONS (7)
  - ABDOMINAL DISTENSION [None]
  - ERUCTATION [None]
  - EPIGASTRIC DISCOMFORT [None]
  - ABDOMINAL PAIN UPPER [None]
  - ABDOMINAL DISCOMFORT [None]
  - FLATULENCE [None]
  - HAEMATEMESIS [None]
